FAERS Safety Report 24745410 (Version 3)
Quarter: 2025Q3

REPORT INFORMATION
  Report Type: Spontaneous
  Country: US (occurrence: US)
  Receive Date: 20241217
  Receipt Date: 20250905
  Transmission Date: 20251021
  Serious: No
  Sender: ROCHE
  Company Number: US-ROCHE-10000156681

PATIENT
  Sex: Female

DRUGS (2)
  1. ACTEMRA ACTPEN [Suspect]
     Active Substance: TOCILIZUMAB
     Indication: Takayasu^s arteritis
     Dosage: STRENGTH : 162MG/ 0.9 M
     Route: 058
     Dates: start: 201910
  2. ACTEMRA ACTPEN [Suspect]
     Active Substance: TOCILIZUMAB
     Route: 058

REACTIONS (4)
  - Off label use [Unknown]
  - Product dispensing error [Unknown]
  - No adverse event [Unknown]
  - Device defective [Unknown]
